FAERS Safety Report 5210879-1 (Version None)
Quarter: 2006Q4

REPORT INFORMATION
  Report Type: 
  Country: None (occurrence: None)
  Receive Date: 20061102
  Receipt Date: 20060725
  Transmission Date: 20070319
  Serious: Yes (Other)
  Sender: FDA-Public Use
  Company Number: 29187

PATIENT
  Age: 33 Year
  Sex: Female
  Weight: 83.0083 kg

DRUGS (2)
  1. METHOTREXATE [Suspect]
     Indication: ECTOPIC PREGNANCY
     Dosage: 94.5 MG/IM
     Dates: start: 20060630
  2. METHOTREXATE [Suspect]
     Indication: ECTOPIC PREGNANCY
     Dosage: 94.5 MG/IM
     Dates: start: 20060710

REACTIONS (1)
  - DRUG INEFFECTIVE [None]
